FAERS Safety Report 10642473 (Version 2)
Quarter: 2014Q4

REPORT INFORMATION
  Report Type: Spontaneous
  Country: US (occurrence: None)
  Receive Date: 20141208
  Receipt Date: 20141219
  Transmission Date: 20150529
  Serious: Yes (Other)
  Sender: FDA-Public Use
  Company Number: 2013-US-003380

PATIENT
  Age: 21 Year
  Sex: Male
  Weight: 68 kg

DRUGS (4)
  1. XYREM [Suspect]
     Active Substance: SODIUM OXYBATE
     Indication: SLEEP APNOEA SYNDROME
     Route: 048
     Dates: start: 201007, end: 2010
  2. XYREM [Suspect]
     Active Substance: SODIUM OXYBATE
     Indication: FIBROMYALGIA
     Route: 048
     Dates: start: 201007, end: 2010
  3. EFFEXOR XR [Concomitant]
     Active Substance: VENLAFAXINE HYDROCHLORIDE
  4. VYVANSE [Suspect]
     Active Substance: LISDEXAMFETAMINE DIMESYLATE
     Indication: ATTENTION DEFICIT/HYPERACTIVITY DISORDER
     Dates: start: 201311, end: 201311

REACTIONS (26)
  - Mast cell activation syndrome [None]
  - Urinary incontinence [None]
  - Migraine [None]
  - Anxiety [None]
  - Ageusia [None]
  - Off label use [None]
  - Skin odour abnormal [None]
  - Negative thoughts [None]
  - Weight increased [None]
  - Dehydration [None]
  - Intentional product misuse [None]
  - Poor quality sleep [None]
  - Nausea [None]
  - Blood potassium decreased [None]
  - Postural orthostatic tachycardia syndrome [None]
  - Circadian rhythm sleep disorder [None]
  - Depressed mood [None]
  - Drug ineffective for unapproved indication [None]
  - Sensory disturbance [None]
  - Thirst [None]
  - Insomnia [None]
  - Tremor [None]
  - Affective disorder [None]
  - Hyperhidrosis [None]
  - Thinking abnormal [None]
  - Decreased appetite [None]

NARRATIVE: CASE EVENT DATE: 20131113
